FAERS Safety Report 15900582 (Version 1)
Quarter: 2019Q1

REPORT INFORMATION
  Report Type: Spontaneous
  Country: US (occurrence: US)
  Receive Date: 20190131
  Receipt Date: 20190131
  Transmission Date: 20190417
  Serious: Yes (Disabling)
  Sender: FDA-Public Use
  Company Number: None

PATIENT
  Age: 61 Year
  Sex: Female
  Weight: 60.6 kg

DRUGS (19)
  1. YERVOY [Suspect]
     Active Substance: IPILIMUMAB
     Indication: CLEAR CELL RENAL CELL CARCINOMA
     Dosage: ?          OTHER FREQUENCY:ONCE;?
     Route: 042
     Dates: start: 20180723, end: 20180813
  2. FLUOXETINE [Concomitant]
     Active Substance: FLUOXETINE HYDROCHLORIDE
  3. MOMETASONE-FORMOTEROL [Concomitant]
  4. CYANOCOBALAMIN. [Concomitant]
     Active Substance: CYANOCOBALAMIN
  5. PRAVASTATIN. [Concomitant]
     Active Substance: PRAVASTATIN
  6. FLUTICASONE. [Concomitant]
     Active Substance: FLUTICASONE
  7. ONDANSETRON [Concomitant]
     Active Substance: ONDANSETRON
  8. SENOKOT-S [Concomitant]
     Active Substance: DOCUSATE SODIUM\SENNOSIDES
  9. TRIAMCINOLONE [Concomitant]
     Active Substance: TRIAMCINOLONE
  10. GABAPENTIN. [Concomitant]
     Active Substance: GABAPENTIN
  11. IPRATROPIUM [Concomitant]
     Active Substance: IPRATROPIUM
  12. METOPROLOL. [Concomitant]
     Active Substance: METOPROLOL
  13. PRIMIDONE. [Concomitant]
     Active Substance: PRIMIDONE
  14. ACETAMINOPHEN. [Concomitant]
     Active Substance: ACETAMINOPHEN
  15. ALBUTEROL. [Concomitant]
     Active Substance: ALBUTEROL
  16. AMLODIPINE [Concomitant]
     Active Substance: AMLODIPINE BESYLATE
  17. OPDIVO [Suspect]
     Active Substance: NIVOLUMAB
     Indication: CLEAR CELL RENAL CELL CARCINOMA
     Dosage: ?          OTHER FREQUENCY:ONCE;?
     Route: 042
     Dates: start: 20180723, end: 20180813
  18. PROCHLORPERAZINE. [Concomitant]
     Active Substance: PROCHLORPERAZINE
  19. TORSEMIDE. [Concomitant]
     Active Substance: TORSEMIDE

REACTIONS (5)
  - Renal impairment [None]
  - Hypercalcaemia [None]
  - Dialysis [None]
  - Immunomodulatory therapy [None]
  - Tubulointerstitial nephritis [None]

NARRATIVE: CASE EVENT DATE: 20180827
